FAERS Safety Report 7308638-9 (Version None)
Quarter: 2011Q1

REPORT INFORMATION
  Report Type: 
  Country: None (occurrence: None)
  Receive Date: 20110223
  Receipt Date: 20110216
  Transmission Date: 20110831
  Serious: Yes (Hospitalization)
  Sender: FDA-Public Use
  Company Number: DE-MERCK-1102DEU00004

PATIENT
  Age: 14 Year
  Sex: Male
  Weight: 66 kg

DRUGS (2)
  1. SINGULAIR [Suspect]
     Indication: ASTHMA
     Route: 048
     Dates: start: 20100901
  2. SINGULAIR [Suspect]
     Route: 048
     Dates: end: 20100901

REACTIONS (2)
  - OVERDOSE [None]
  - EPILEPSY [None]
